FAERS Safety Report 22356616 (Version 1)
Quarter: 2023Q2

REPORT INFORMATION
  Report Type: Spontaneous
  Country: US (occurrence: US)
  Receive Date: 20230523
  Receipt Date: 20230523
  Transmission Date: 20230721
  Serious: Yes (Other)
  Sender: FDA-Public Use
  Company Number: US-MYLANLABS-2023M1053950

PATIENT
  Age: 59 Year
  Sex: Female

DRUGS (2)
  1. PACLITAXEL [Interacting]
     Active Substance: PACLITAXEL
     Indication: Oesophageal adenocarcinoma
     Dosage: UNK
     Route: 065
  2. RAMUCIRUMAB [Interacting]
     Active Substance: RAMUCIRUMAB
     Indication: Oesophageal adenocarcinoma
     Dosage: UNK
     Route: 065

REACTIONS (2)
  - Pyogenic granuloma [Unknown]
  - Drug interaction [Unknown]
